FAERS Safety Report 4433239-X (Version None)
Quarter: 2004Q3

REPORT INFORMATION
  Report Type: 
  Country: None (occurrence: None)
  Receive Date: 20040824
  Receipt Date: 20040812
  Transmission Date: 20050211
  Serious: No
  Sender: FDA-Public Use
  Company Number: 2004UW17154

PATIENT
  Sex: Female

DRUGS (1)
  1. SEROQUEL [Suspect]
     Dosage: 50 MG PO
     Route: 048

REACTIONS (4)
  - BLINDNESS [None]
  - DEAFNESS [None]
  - HYPERSENSITIVITY [None]
  - MUSCLE ATROPHY [None]
